FAERS Safety Report 5144384-8 (Version None)
Quarter: 2006Q4

REPORT INFORMATION
  Report Type: 
  Country: None (occurrence: None)
  Receive Date: 20061030
  Receipt Date: 20061024
  Transmission Date: 20070319
  Serious: Yes (Other)
  Sender: FDA-Public Use
  Company Number: S06-USA-04450-01

PATIENT
  Age: 42 Year
  Sex: Male

DRUGS (4)
  1. CELEXA [Suspect]
     Indication: ANXIETY
     Dates: start: 20050601
  2. CELEXA [Suspect]
     Indication: DEPRESSED MOOD
     Dates: start: 20050601
  3. CELEXA [Suspect]
     Indication: PALPITATIONS
     Dates: start: 20050601
  4. BLOOD PRSSURE MEDICATION (NOS) [Concomitant]

REACTIONS (1)
  - RENAL DISORDER [None]
